FAERS Safety Report 7768984-1 (Version None)
Quarter: 2011Q3

REPORT INFORMATION
  Report Type: 
  Country: None (occurrence: None)
  Receive Date: 20110922
  Receipt Date: 20110304
  Transmission Date: 20111222
  Serious: No
  Sender: FDA-Public Use
  Company Number: US-ASTRAZENECA-2010SE59320

PATIENT
  Sex: Male

DRUGS (12)
  1. SEROQUEL [Interacting]
     Route: 048
     Dates: start: 20101130, end: 20101201
  2. AMLODIPINE [Concomitant]
     Indication: HYPERTENSION
  3. SEROQUEL [Interacting]
     Route: 048
     Dates: start: 20101214
  4. SEROQUEL [Interacting]
     Indication: AKINESIA
     Route: 048
     Dates: start: 20101115, end: 20101116
  5. METFORMIN [Concomitant]
     Indication: DIABETES MELLITUS
  6. METHADONE HCL [Concomitant]
     Indication: DRUG WITHDRAWAL SYNDROME
  7. SEROQUEL [Suspect]
     Indication: SLEEP DISORDER
     Route: 048
     Dates: start: 20101115, end: 20101116
  8. REQUIP [Interacting]
     Indication: RESTLESS LEGS SYNDROME
     Dates: start: 20080101
  9. SEROQUEL [Interacting]
     Route: 048
     Dates: start: 20101214
  10. SEROQUEL [Interacting]
     Route: 048
     Dates: start: 20101130, end: 20101201
  11. OMEPRAZOLE [Concomitant]
     Route: 048
  12. LOSARTAN KCL [Concomitant]
     Indication: HYPERTENSION

REACTIONS (10)
  - DRUG INTERACTION [None]
  - MUSCULAR WEAKNESS [None]
  - HYPERSOMNIA [None]
  - URINARY TRACT INFECTION [None]
  - HALLUCINATION [None]
  - HEAD INJURY [None]
  - FALL [None]
  - SEDATION [None]
  - DYSKINESIA [None]
  - RESTLESS LEGS SYNDROME [None]
